FAERS Safety Report 7449577-2 (Version None)
Quarter: 2011Q2

REPORT INFORMATION
  Report Type: 
  Country: None (occurrence: None)
  Receive Date: 20110502
  Receipt Date: 20110411
  Transmission Date: 20111010
  Serious: Yes (Hospitalization)
  Sender: FDA-Public Use
  Company Number: US-BAYER-2011-025508

PATIENT
  Age: 57 Year
  Sex: Female

DRUGS (7)
  1. BLOOD PRESSURE MEDICATION (NOS) [Concomitant]
     Indication: HYPERTENSION
  2. ACETAMINOPHEN [Concomitant]
     Indication: PREMEDICATION
  3. BETASERON [Suspect]
     Indication: MULTIPLE SCLEROSIS
     Dosage: 8 MIU, QOD
     Route: 058
     Dates: start: 20101220
  4. ASPIRIN [Concomitant]
  5. BETASERON [Suspect]
     Dosage: 8 MIU, QOD
     Route: 058
     Dates: start: 20101220
  6. LYRICA [Concomitant]
  7. PLAVIX [Concomitant]

REACTIONS (8)
  - HEAT EXHAUSTION [None]
  - INJECTION SITE ERYTHEMA [None]
  - INJECTION SITE INJURY [None]
  - INJECTION SITE HAEMORRHAGE [None]
  - PRURITUS [None]
  - VERTIGO [None]
  - PAIN IN EXTREMITY [None]
  - BLOOD PRESSURE INCREASED [None]
